FAERS Safety Report 14857005 (Version 1)
Quarter: 2018Q2

REPORT INFORMATION
  Report Type: Report from Study
  Country: JP (occurrence: JP)
  Receive Date: 20180507
  Receipt Date: 20180507
  Transmission Date: 20180711
  Serious: Yes (Hospitalization, Other)
  Sender: FDA-Public Use
  Company Number: JP-GILEAD-2009-0023507

PATIENT
  Age: 58 Year
  Sex: Male

DRUGS (5)
  1. NORVIR [Concomitant]
     Active Substance: RITONAVIR
     Indication: HIV INFECTION
     Dates: start: 20070528, end: 20081014
  2. BENAMBAX [Concomitant]
     Active Substance: PENTAMIDINE
     Dates: start: 20080401
  3. TRUVADA [Suspect]
     Active Substance: EMTRICITABINE\TENOFOVIR DISOPROXIL FUMARATE
     Indication: HIV INFECTION
     Route: 048
     Dates: start: 20070528, end: 20081014
  4. REYATAZ [Concomitant]
     Active Substance: ATAZANAVIR SULFATE
     Indication: HIV INFECTION
     Dates: start: 20070528, end: 20081014
  5. PREDONINE [Suspect]
     Active Substance: PREDNISOLONE
     Indication: ERYTHEMA
     Route: 048
     Dates: start: 20080401, end: 20090211

REACTIONS (2)
  - Osteoporotic fracture [Recovered/Resolved]
  - HIV-associated neurocognitive disorder [Not Recovered/Not Resolved]

NARRATIVE: CASE EVENT DATE: 200804
